FAERS Safety Report 25414581 (Version 1)
Quarter: 2025Q2

REPORT INFORMATION
  Report Type: Spontaneous
  Country: US (occurrence: US)
  Receive Date: 20250609
  Receipt Date: 20250609
  Transmission Date: 20250716
  Serious: No
  Sender: SANOFI AVENTIS
  Company Number: US-SA-2025SA158739

PATIENT
  Sex: Male

DRUGS (9)
  1. DUPIXENT [Suspect]
     Active Substance: DUPILUMAB
     Indication: Dermatitis atopic
     Dosage: 300 MG, QOW
     Route: 058
     Dates: start: 20190130
  2. ALBUTEROL SULFATE [Concomitant]
     Active Substance: ALBUTEROL SULFATE
  3. BETAMETHASONE DIPROPIONATE [Concomitant]
     Active Substance: BETAMETHASONE DIPROPIONATE
  4. CLOTRIMAZOLE [Concomitant]
     Active Substance: CLOTRIMAZOLE
  5. EPINEPHRINE [Concomitant]
     Active Substance: EPINEPHRINE
  6. HYDROCORTISONE [Concomitant]
     Active Substance: HYDROCORTISONE
  7. METHYLPHENIDATE [Concomitant]
     Active Substance: METHYLPHENIDATE
  8. SINGULAIR [Concomitant]
     Active Substance: MONTELUKAST SODIUM
  9. TRETINOIN [Concomitant]
     Active Substance: TRETINOIN

REACTIONS (3)
  - Discomfort [Not Recovered/Not Resolved]
  - Rash [Not Recovered/Not Resolved]
  - Drug ineffective [Unknown]
